FAERS Safety Report 8212539-1 (Version None)
Quarter: 2012Q1

REPORT INFORMATION
  Report Type: 
  Country: None (occurrence: None)
  Receive Date: 20120315
  Receipt Date: 20120305
  Transmission Date: 20120608
  Serious: No
  Sender: FDA-Public Use
  Company Number: US-BAYER-2012-023554

PATIENT
  Sex: Female

DRUGS (1)
  1. YAZ [Suspect]
     Indication: ADENOMYOSIS
     Dosage: UNK

REACTIONS (4)
  - DEPRESSION [None]
  - MENTAL DISORDER [None]
  - ANXIETY [None]
  - FEELING ABNORMAL [None]
